FAERS Safety Report 7610560-5 (Version None)
Quarter: 2011Q3

REPORT INFORMATION
  Report Type: 
  Country: None (occurrence: None)
  Receive Date: 20110715
  Receipt Date: 20110524
  Transmission Date: 20111222
  Serious: Yes (Death, Hospitalization, Other)
  Sender: FDA-Public Use
  Company Number: US-BAYER-200927714NA

PATIENT
  Age: 70 Year
  Sex: Male
  Weight: 86 kg

DRUGS (32)
  1. PLAVIX [Concomitant]
     Dosage: 75 MG, QD
     Route: 048
     Dates: start: 20031112, end: 20070821
  2. CALCIUM CHLORIDE [Concomitant]
     Dosage: 10 ML, UNK
     Route: 042
     Dates: start: 20070824, end: 20070824
  3. COSEAL [Suspect]
     Dosage: 4 ML
     Route: 061
     Dates: start: 20070824, end: 20070824
  4. PLATELETS [Concomitant]
     Dosage: 6 U, UNK
     Route: 042
     Dates: start: 20070824, end: 20070824
  5. LIPITOR [Concomitant]
     Dosage: 10 MG, QD
     Route: 048
     Dates: start: 20020717
  6. NITROGLYCERIN [Concomitant]
     Dosage: 0.4 MG, PRN
  7. ACETYLSALICYLIC ACID SRT [Concomitant]
     Dosage: 81 MG, UNK
     Route: 048
  8. INSULIN [Concomitant]
     Dosage: 14 U, UNK
     Route: 042
     Dates: start: 20070824, end: 20070824
  9. IMDUR [Concomitant]
     Dosage: 15 MG, UNK
     Route: 048
     Dates: start: 20070821
  10. ROCURONIUM BROMIDE [Concomitant]
     Dosage: 60 MG, UNK
     Route: 042
     Dates: start: 20070824, end: 20070824
  11. ROBINUL [Concomitant]
     Dosage: 0.2 UNK, UNK
     Route: 042
     Dates: start: 20070824, end: 20070824
  12. TRASYLOL [Suspect]
     Indication: CORONARY ARTERY BYPASS
     Dosage: 1 ML,  TEST DOSE
     Route: 042
     Dates: start: 20070824, end: 20070824
  13. TRASYLOL [Suspect]
     Dosage: 400 ML, Q1HR
     Route: 042
     Dates: start: 20070824, end: 20070824
  14. NIFEDICAL [Concomitant]
     Dosage: 30 MG, QD
     Route: 048
     Dates: start: 20060601
  15. LIDOCAINE [Concomitant]
     Dosage: 100 MG, UNK
     Route: 042
     Dates: start: 20070824, end: 20070824
  16. PROTAMINE SULFATE [Concomitant]
     Dosage: 250 MG, UNK
     Route: 042
     Dates: start: 20070824, end: 20070824
  17. TRASYLOL [Suspect]
     Dosage: 50 ML/HR
     Route: 042
     Dates: start: 20070824, end: 20070824
  18. RED BLOOD CELLS [Concomitant]
     Dosage: 4 U, UNK
     Route: 042
     Dates: start: 20070824, end: 20070824
  19. ETOMIDATE [Concomitant]
     Dosage: 40 MG, UNK
     Route: 042
     Dates: start: 20070824, end: 20070824
  20. HEPARIN [Concomitant]
     Dosage: 25000 U, UNK
     Route: 042
     Dates: start: 20070824, end: 20070824
  21. ZINACEF [Concomitant]
     Dosage: 1.5 G, 1.5 G
     Route: 042
     Dates: start: 20070824, end: 20070824
  22. SEVOFLURANE [Suspect]
     Dosage: 1.6-2.0%, INHALANT
     Route: 049
     Dates: start: 20070824, end: 20070824
  23. ATENOLOL [Concomitant]
     Dosage: 25 MG, QD
     Route: 048
     Dates: start: 20020717
  24. EPINEPHRINE [Concomitant]
     Dosage: 5 MG, UNK
     Route: 042
     Dates: start: 20070824, end: 20070824
  25. TRASYLOL [Suspect]
     Dosage: 200 ML,  BOLUS
     Route: 042
     Dates: start: 20070824, end: 20070824
  26. GLYBURIDE [Concomitant]
     Dosage: 25 MG, QD
     Route: 048
     Dates: start: 20020717
  27. METFORMIN HCL [Concomitant]
     Dosage: 850 MG, QD
     Route: 048
     Dates: start: 20060101
  28. ACTOS [Concomitant]
     Dosage: 45 MG, QD
     Route: 048
     Dates: start: 20050125
  29. LISINOPRIL [Concomitant]
     Dosage: 5 MG, QD
     Route: 048
     Dates: start: 20060426
  30. OMEPRAZOLE [Concomitant]
     Dosage: 20 MG, QD
     Route: 048
     Dates: start: 20041103
  31. PERCOCET [Concomitant]
     Dosage: 325 MG, PRN
     Route: 048
     Dates: start: 20030806
  32. VERSED [Concomitant]
     Dosage: 5 MG, UNK
     Route: 042
     Dates: start: 20070824, end: 20070824

REACTIONS (13)
  - RENAL IMPAIRMENT [None]
  - MULTI-ORGAN FAILURE [None]
  - ANHEDONIA [None]
  - INJURY [None]
  - DEATH [None]
  - EMOTIONAL DISTRESS [None]
  - ANXIETY [None]
  - PAIN [None]
  - UNEVALUABLE EVENT [None]
  - FEAR [None]
  - RENAL FAILURE [None]
  - RENAL INJURY [None]
  - STRESS [None]
